FAERS Safety Report 9003858 (Version 1)
Quarter: 2013Q1

REPORT INFORMATION
  Report Type: Spontaneous
  Country: US (occurrence: US)
  Receive Date: 20130108
  Receipt Date: 20130108
  Transmission Date: 20140127
  Serious: No
  Sender: FDA-Public Use
  Company Number: US-GLAXOSMITHKLINE-A0996679A

PATIENT
  Sex: Male

DRUGS (3)
  1. LOVAZA [Suspect]
     Indication: OFF LABEL USE
     Dosage: 1CAP ALTERNATE DAYS
     Route: 048
  2. PRAVACHOL [Concomitant]
  3. WELCHOL [Concomitant]

REACTIONS (1)
  - Low density lipoprotein increased [Unknown]
